FAERS Safety Report 5509215-2 (Version None)
Quarter: 2007Q4

REPORT INFORMATION
  Report Type: 
  Country: None (occurrence: None)
  Receive Date: 20071107
  Receipt Date: 20071026
  Transmission Date: 20080405
  Serious: Yes (Hospitalization)
  Sender: FDA-Public Use
  Company Number: US-ELI_LILLY_AND_COMPANY-US200710006917

PATIENT
  Sex: Female

DRUGS (14)
  1. BYETTA [Suspect]
     Dosage: 10 MG, DAILY (1/D)
     Route: 058
     Dates: start: 20051129, end: 20071009
  2. LASIX [Concomitant]
     Dosage: 40 MG, 2/D
     Route: 048
  3. VITAMIN D [Concomitant]
     Dosage: 50000 IU, MONTHLY (1/M)
     Route: 048
  4. RANITIDINE [Concomitant]
     Dosage: 150 MG, 2/D
     Route: 048
  5. LEVEMIR [Concomitant]
     Dosage: 10 U, EACH MORNING
  6. LEVEMIR [Concomitant]
     Dosage: 70 U, EACH EVENING
  7. PRECOSE [Concomitant]
     Dosage: 50 MG, 2/D
     Route: 048
  8. VITAMIN B-12 [Concomitant]
     Dosage: UNK, UNKNOWN
  9. ASPIRIN [Concomitant]
     Dosage: 81 MG, DAILY (1/D)
     Route: 048
  10. LISINOPRIL [Concomitant]
     Dosage: 40 MG, 2/D
     Route: 048
  11. CADUET [Concomitant]
     Dosage: UNK, DAILY (1/D)
     Route: 048
  12. METFORMIN HCL [Concomitant]
     Dosage: 1000 MG, 2/D
     Route: 048
  13. WELLBUTRIN XL [Concomitant]
     Dosage: 300 MG, DAILY (1/D)
     Route: 048
  14. ADVAIR DISKUS 100/50 [Concomitant]
     Dosage: 110 UG, AS NEEDED
     Route: 055

REACTIONS (3)
  - CHOLELITHIASIS [None]
  - CONSTIPATION [None]
  - PANCREATITIS [None]
